FAERS Safety Report 4572525-X (Version None)
Quarter: 2005Q1

REPORT INFORMATION
  Report Type: 
  Country: None (occurrence: None)
  Receive Date: 20050207
  Receipt Date: 20050201
  Transmission Date: 20050727
  Serious: Yes (Hospitalization)
  Sender: FDA-Public Use
  Company Number: US-MERCK-0502USA00134

PATIENT
  Age: 47 Year
  Sex: Male

DRUGS (6)
  1. VIOXX [Suspect]
     Indication: ARTHRITIS
     Route: 048
     Dates: start: 19990101, end: 20040930
  2. OXYCONTIN [Concomitant]
     Route: 065
  3. ROXICODONE [Concomitant]
     Route: 065
  4. RITALIN [Concomitant]
     Route: 065
  5. KRISTALOSE [Concomitant]
     Route: 065
  6. TIZANIDINE HYDROCHLORIDE [Concomitant]
     Route: 065

REACTIONS (3)
  - DYSPNOEA [None]
  - LABILE BLOOD PRESSURE [None]
  - PALPITATIONS [None]
